FAERS Safety Report 9205827 (Version 1)
Quarter: 2013Q1

REPORT INFORMATION
  Report Type: Spontaneous
  Country: US (occurrence: None)
  Receive Date: 20120709
  Receipt Date: 20120709
  Transmission Date: 20140127
  Serious: Yes (Other)
  Sender: FDA-Public Use
  Company Number: PHEH2011US04787

PATIENT
  Age: 45 Year
  Sex: Female

DRUGS (1)
  1. GLEEVEC (IMATINIB) [Suspect]
     Indication: MASTOCYTOSIS
     Route: 048
     Dates: start: 201010, end: 20110803

REACTIONS (4)
  - Neoplasm malignant [None]
  - Condition aggravated [None]
  - Disorientation [None]
  - Pollakiuria [None]
